FAERS Safety Report 23513247 (Version 1)
Quarter: 2024Q1

REPORT INFORMATION
  Report Type: Spontaneous
  Country: US (occurrence: None)
  Receive Date: 20240210
  Receipt Date: 20240210
  Transmission Date: 20240410
  Serious: Yes (unspecified)
  Sender: FDA-Public Use
  Company Number: None

PATIENT
  Age: 70 Year
  Sex: Male
  Weight: 62.1 kg

DRUGS (19)
  1. PAXLOVID [Suspect]
     Active Substance: NIRMATRELVIR\RITONAVIR
     Indication: COVID-19
     Dosage: OTHER QUANTITY : 3 TABLET(S);?FREQUENCY : TWICE A DAY;?
     Route: 048
     Dates: start: 20240126, end: 20240130
  2. SEREVENT DISKUS [Concomitant]
     Active Substance: SALMETEROL XINAFOATE
  3. ALBUTEROL [Concomitant]
     Active Substance: ALBUTEROL
  4. MONTELUKAST SODIUM [Concomitant]
     Active Substance: MONTELUKAST SODIUM
  5. CETIRIZINE HYDROCHLORIDE [Concomitant]
     Active Substance: CETIRIZINE HYDROCHLORIDE
  6. PANTOPRAZOLE [Concomitant]
     Active Substance: PANTOPRAZOLE
  7. GEMFIBROZIL [Concomitant]
     Active Substance: GEMFIBROZIL
  8. ASTELIN [Concomitant]
     Active Substance: AZELASTINE HYDROCHLORIDE
  9. MOMETASONE [Concomitant]
     Active Substance: MOMETASONE
  10. Furoate nasal sprays [Concomitant]
  11. FOLIC ACID [Concomitant]
     Active Substance: FOLIC ACID
  12. B12 shot [Concomitant]
  13. LEVOTHROID [Concomitant]
     Active Substance: LEVOTHYROXINE SODIUM
  14. CALCIUM [Concomitant]
     Active Substance: CALCIUM
  15. VITAMIN D3 [Concomitant]
     Active Substance: CHOLECALCIFEROL
  16. ZINC [Concomitant]
     Active Substance: PYRITHIONE ZINC\ZINC\ZINC CHLORIDE
  17. MAGNESIUM [Concomitant]
     Active Substance: MAGNESIUM
  18. VITAMIN C [Concomitant]
     Active Substance: ASCORBIC ACID
  19. QUERCETIN [Concomitant]
     Active Substance: QUERCETIN

REACTIONS (5)
  - Mouth ulceration [None]
  - Cellulitis [None]
  - Gingival pain [None]
  - Oropharyngeal pain [None]
  - Adverse drug reaction [None]

NARRATIVE: CASE EVENT DATE: 20240127
